FAERS Safety Report 20870534 (Version 6)
Quarter: 2022Q3

REPORT INFORMATION
  Report Type: Spontaneous
  Country: US (occurrence: US)
  Receive Date: 20220525
  Receipt Date: 20220729
  Transmission Date: 20221027
  Serious: Yes (Hospitalization, Other)
  Sender: FDA-Public Use
  Company Number: US-GILEAD-2022-0582038

PATIENT
  Sex: Male

DRUGS (15)
  1. EPCLUSA [Suspect]
     Active Substance: SOFOSBUVIR\VELPATASVIR
     Indication: Chronic hepatitis C
     Dosage: 1 DOSAGE FORM, QD
     Route: 048
  2. EPCLUSA [Suspect]
     Active Substance: SOFOSBUVIR\VELPATASVIR
     Dosage: 2 DOSAGE FORM, BID
     Route: 048
  3. RIBAVIRIN [Concomitant]
     Active Substance: RIBAVIRIN
  4. AMOXICILLIN/CLAVULANIC ACID [AMOXICILLIN SODIUM;CLAVULANATE POTASSIUM] [Concomitant]
  5. CIPROFLOXACIN [Concomitant]
     Active Substance: CIPROFLOXACIN
  6. ALLOPURINOL [Concomitant]
     Active Substance: ALLOPURINOL
  7. ASCORBIC ACID [Concomitant]
     Active Substance: ASCORBIC ACID
  8. VITAMIN D3 [Concomitant]
     Active Substance: CHOLECALCIFEROL
  9. FERROUS FUMARATE [Concomitant]
     Active Substance: FERROUS FUMARATE
  10. LACTULOSE [Concomitant]
     Active Substance: LACTULOSE
  11. MAGNESIUM OXIDE [Concomitant]
     Active Substance: MAGNESIUM OXIDE
  12. VITAMINS NOS [Concomitant]
     Active Substance: VITAMINS
  13. NADOLOL [Concomitant]
     Active Substance: NADOLOL
  14. RIFAXIMIN [Concomitant]
     Active Substance: RIFAXIMIN
  15. TAMSULOSIN HYDROCHLORIDE [Concomitant]
     Active Substance: TAMSULOSIN HYDROCHLORIDE

REACTIONS (9)
  - Septic shock [Unknown]
  - Spontaneous bacterial peritonitis [Unknown]
  - Feeling cold [Unknown]
  - Hypotension [Unknown]
  - Drug ineffective [Unknown]
  - Diarrhoea [Unknown]
  - Decreased appetite [Unknown]
  - Intentional dose omission [Unknown]
  - Prescribed overdose [Unknown]
